FAERS Safety Report 11028920 (Version 2)
Quarter: 2015Q2

REPORT INFORMATION
  Report Type: Spontaneous
  Country: US (occurrence: US)
  Receive Date: 20150414
  Receipt Date: 20150525
  Transmission Date: 20150821
  Serious: No
  Sender: FDA-Public Use
  Company Number: US-JNJFOC-20130806330

PATIENT
  Age: 19 Year
  Sex: Female

DRUGS (4)
  1. ORTHO TRI CYCLEN LO [Suspect]
     Active Substance: ETHINYL ESTRADIOL\NORGESTIMATE
     Indication: SKIN DISORDER
     Route: 048
     Dates: start: 2013, end: 2013
  2. ORTHO TRI CYCLEN LO [Suspect]
     Active Substance: ETHINYL ESTRADIOL\NORGESTIMATE
     Indication: CONTRACEPTION
     Route: 048
     Dates: start: 2013, end: 2013
  3. ORAL CONTRACEPTIVE [Suspect]
     Active Substance: UNSPECIFIED INGREDIENT
     Indication: SKIN DISORDER
     Route: 048
     Dates: start: 2013
  4. ORAL CONTRACEPTIVE [Suspect]
     Active Substance: UNSPECIFIED INGREDIENT
     Indication: CONTRACEPTION
     Route: 048
     Dates: start: 2013

REACTIONS (5)
  - Off label use [Unknown]
  - Therapeutic response unexpected [Unknown]
  - Abdominal distension [Not Recovered/Not Resolved]
  - Weight increased [Not Recovered/Not Resolved]
  - Skin disorder [Not Recovered/Not Resolved]

NARRATIVE: CASE EVENT DATE: 2013
